FAERS Safety Report 6186761-2 (Version None)
Quarter: 2009Q2

REPORT INFORMATION
  Report Type: 
  Country: None (occurrence: None)
  Receive Date: 20090512
  Receipt Date: 20090504
  Transmission Date: 20091009
  Serious: Yes (Other)
  Sender: FDA-Public Use
  Company Number: US-ROCHE-628235

PATIENT
  Sex: Female

DRUGS (1)
  1. ISOTRETINOIN [Suspect]
     Indication: DRUG USE FOR UNKNOWN INDICATION
     Dosage: DISPENSED 40MG ACCUTANE CAPSULES ON 06JAN09,11FEB09,16MAR09.
     Route: 065
     Dates: end: 20090415

REACTIONS (1)
  - ABORTION INDUCED [None]
